FAERS Safety Report 10450562 (Version 5)
Quarter: 2015Q3

REPORT INFORMATION
  Report Type: Report from Study
  Country: US (occurrence: US)
  Receive Date: 20140912
  Receipt Date: 20150804
  Transmission Date: 20151125
  Serious: No
  Sender: FDA-Public Use
  Company Number: US-ALEXION-A201403460

PATIENT

DRUGS (1)
  1. SOLIRIS [Suspect]
     Active Substance: ECULIZUMAB
     Indication: HAEMOLYTIC URAEMIC SYNDROME
     Route: 042

REACTIONS (8)
  - Chromaturia [Unknown]
  - Blood creatinine increased [Unknown]
  - Pyrexia [Recovered/Resolved]
  - Swelling [Unknown]
  - Urticaria [Recovered/Resolved]
  - Malaise [Unknown]
  - Tooth injury [Unknown]
  - Alopecia [Unknown]

NARRATIVE: CASE EVENT DATE: 20140901
